FAERS Safety Report 21726606 (Version 1)
Quarter: 2022Q4

REPORT INFORMATION
  Report Type: Spontaneous
  Country: CN (occurrence: None)
  Receive Date: 20221214
  Receipt Date: 20221214
  Transmission Date: 20230113
  Serious: Yes (Hospitalization)
  Sender: FDA-Public Use
  Company Number: 2022A400403

PATIENT
  Age: 13514 Day
  Sex: Male
  Weight: 73 kg

DRUGS (1)
  1. ESOMEPRAZOLE MAGNESIUM [Suspect]
     Active Substance: ESOMEPRAZOLE MAGNESIUM
     Indication: Chronic gastritis
     Route: 048
     Dates: start: 20220417, end: 20220430

REACTIONS (1)
  - Coloboma [Recovered/Resolved]

NARRATIVE: CASE EVENT DATE: 20220425
